FAERS Safety Report 5157822-1 (Version None)
Quarter: 2006Q4

REPORT INFORMATION
  Report Type: 
  Country: None (occurrence: None)
  Receive Date: 20061116
  Receipt Date: 20061110
  Transmission Date: 20070319
  Serious: Yes (Death, Hospitalization, Disabling)
  Sender: FDA-Public Use
  Company Number: 2006SP004622

PATIENT
  Age: 58 Year
  Sex: Male

DRUGS (2)
  1. TEMODAL (TEMOZOLOMODE) [Suspect]
     Indication: METASTASES TO CENTRAL NERVOUS SYSTEM
     Dosage: 360 MG; PO
     Route: 048
     Dates: start: 20020930, end: 20021115
  2. CISPLATIN [Suspect]
     Indication: METASTASES TO CENTRAL NERVOUS SYSTEM

REACTIONS (4)
  - ASPERGILLOSIS [None]
  - DRUG TOXICITY [None]
  - FEBRILE BONE MARROW APLASIA [None]
  - LISTERIOSIS [None]
